FAERS Safety Report 5596890-X (Version None)
Quarter: 2007Q4

REPORT INFORMATION
  Report Type: 
  Country: None (occurrence: None)
  Receive Date: 20071220
  Receipt Date: 20070924
  Transmission Date: 20080405
  Serious: Yes (Other)
  Sender: FDA-Public Use
  Company Number: 2211100-US-JNJFOC-20070904962

PATIENT
  Age: 43 Year
  Sex: Female

DRUGS (2)
  1. NORGESTIMATE AND ETHINYL ESTRADIOL [Suspect]
     Indication: DRUG USE FOR UNKNOWN INDICATION
     Dosage: ORAL
     Route: 048
  2. FLIBANSERIN (ALL OTHER THERAPEUTIC PRODUCTS) [Suspect]
     Dosage: LIBIDO DECREASED

REACTIONS (1)
  - BREAST CANCER [None]
